FAERS Safety Report 24668946 (Version 5)
Quarter: 2025Q4

REPORT INFORMATION
  Report Type: Report from Study
  Country: EU (occurrence: None)
  Receive Date: 20241127
  Receipt Date: 20251024
  Transmission Date: 20260118
  Serious: Yes (Other)
  Sender: UCB
  Company Number: EU-UCBSA-2024053832

PATIENT
  Weight: 86 kg

DRUGS (10)
  1. BIMEKIZUMAB [Suspect]
     Active Substance: BIMEKIZUMAB
     Indication: Axial spondyloarthritis
     Dosage: 160 MILLIGRAM, EV 4 WEEKS
  2. CHOLECALCIFEROL [Concomitant]
     Active Substance: CHOLECALCIFEROL
     Indication: Vitamin D deficiency
     Dosage: 1000 IU, ONCE DAILY (QD)
  3. Ramipril-Ramilich [Concomitant]
     Indication: Hypertension
     Dosage: 5 MILLIGRAM, TABLET EFFERVESCENT
  4. RAMIPRIL [Concomitant]
     Active Substance: RAMIPRIL
     Indication: Hypertension
     Dosage: 5 MILLIGRAM, ONCE DAILY (QD), TABLET EFFERVESCENT
  5. HYDROCHLOROTHIAZIDE [Concomitant]
     Active Substance: HYDROCHLOROTHIAZIDE
     Indication: Hypertension
     Dosage: 12.5 MILLIGRAM, ONCE DAILY (QD), TABLET EFFERVESCENT
  6. ETORICOXIB [Concomitant]
     Active Substance: ETORICOXIB
     Indication: Pain
     Dosage: 90 MILLIGRAM, AS NEEDED
  7. novalminsulfon [Concomitant]
     Indication: Pain
     Dosage: 500 MILLIGRAM, AS NEEDED (PRN), TABLET EFFERVESCENT
  8. METHOTREXATE [Concomitant]
     Active Substance: METHOTREXATE
     Indication: Axial spondyloarthritis
     Dosage: 15 MILLIGRAM, WEEKLY (QW)
  9. Folid acid [Concomitant]
     Indication: Axial spondyloarthritis
     Dosage: 5 MILLIGRAM, WEEKLY (QW)
  10. LEVOTHYROXINE SODIUM [Concomitant]
     Active Substance: LEVOTHYROXINE SODIUM
     Indication: Hypothyroidism
     Dosage: 125 MICROGRAM, ONCE DAILY (QD), TABLET EFFERVESCENT

REACTIONS (4)
  - Erysipelas [Recovered/Resolved]
  - Arthropod bite [Unknown]
  - Erythema migrans [Not Recovered/Not Resolved]
  - Drug ineffective [Unknown]
